FAERS Safety Report 8099678-3 (Version None)
Quarter: 2012Q1

REPORT INFORMATION
  Report Type: 
  Country: None (occurrence: None)
  Receive Date: 20120129
  Receipt Date: 20111008
  Transmission Date: 20120608
  Serious: No
  Sender: FDA-Public Use
  Company Number: US-ABBOTT-11P-163-0862359-00

PATIENT
  Age: 34 Year
  Sex: Male

DRUGS (1)
  1. HUMIRA [Suspect]
     Indication: CROHN'S DISEASE

REACTIONS (8)
  - HAEMOGLOBIN DECREASED [None]
  - MALAISE [None]
  - VOMITING [None]
  - BLOOD IRON DECREASED [None]
  - MUSCLE SPASMS [None]
  - FATIGUE [None]
  - PAIN [None]
  - NAUSEA [None]
